FAERS Safety Report 4323931-X (Version None)
Quarter: 2004Q1

REPORT INFORMATION
  Report Type: 
  Country: None (occurrence: None)
  Receive Date: 20040323
  Receipt Date: 20040315
  Transmission Date: 20041129
  Serious: Yes (Hospitalization)
  Sender: FDA-Public Use
  Company Number: 230036M04USA

PATIENT
  Age: 57 Year
  Sex: Female

DRUGS (10)
  1. REBIF [Suspect]
     Indication: MULTIPLE SCLEROSIS
  2. LEVOFLOXACIN [Suspect]
     Dosage: 250 MG, 1 IN 1 DAY, PER ORAL
     Route: 048
     Dates: start: 20040207
  3. PANTOPRAZOLE [Concomitant]
  4. ALPRAZOLAM [Concomitant]
  5. VENLAFAXINE HCL [Concomitant]
  6. SUMATRIPTAN SUCCINATE [Concomitant]
  7. BACTRIM [Concomitant]
  8. ESCITALOPRAM [Concomitant]
  9. CLONAZEPAM [Concomitant]
  10. AMANTADINE HCL [Concomitant]

REACTIONS (24)
  - ABASIA [None]
  - ANAEMIA [None]
  - ASTHENIA [None]
  - ATAXIA [None]
  - BLOOD SODIUM DECREASED [None]
  - CONFUSIONAL STATE [None]
  - DECREASED APPETITE [None]
  - DEHYDRATION [None]
  - DYSARTHRIA [None]
  - DYSKINESIA [None]
  - DYSPEPSIA [None]
  - DYSPHAGIA [None]
  - FOLATE DEFICIENCY [None]
  - GASTROINTESTINAL HAEMORRHAGE [None]
  - GRAND MAL CONVULSION [None]
  - INFLUENZA [None]
  - LIP HAEMORRHAGE [None]
  - METASTASIS [None]
  - MUSCLE CRAMP [None]
  - SHIFT TO THE LEFT [None]
  - SOMNOLENCE [None]
  - SPEECH DISORDER [None]
  - URINARY TRACT INFECTION [None]
  - WEIGHT DECREASED [None]
